FAERS Safety Report 6071012-X (Version None)
Quarter: 2009Q1

REPORT INFORMATION
  Report Type: 
  Country: None (occurrence: None)
  Receive Date: 20090209
  Receipt Date: 20090128
  Transmission Date: 20090719
  Serious: Yes (Hospitalization)
  Sender: FDA-Public Use
  Company Number: B0556368A

PATIENT
  Age: 51 Year
  Sex: Female

DRUGS (5)
  1. BECONASE [Suspect]
     Route: 045
     Dates: start: 20080601
  2. CELESTENE [Suspect]
     Dosage: 1UNIT PER DAY
     Route: 030
     Dates: start: 20080627
  3. SOLUPRED [Suspect]
     Dosage: 60MG UNKNOWN
     Route: 048
     Dates: start: 20080628, end: 20080701
  4. NAAXIA [Suspect]
     Route: 047
     Dates: start: 20080601
  5. ENOXOLONE [Suspect]
     Indication: SKIN LESION
     Route: 061
     Dates: start: 20080601

REACTIONS (18)
  - CHEILITIS [None]
  - CONJUNCTIVITIS [None]
  - EOSINOPHILIA [None]
  - ERYTHEMA [None]
  - ERYTHEMA MULTIFORME [None]
  - EYE DISORDER [None]
  - INFLAMMATION [None]
  - LYMPHOPENIA [None]
  - MOUTH ULCERATION [None]
  - MUCOUS MEMBRANE DISORDER [None]
  - ORAL DISCOMFORT [None]
  - ORAL DISORDER [None]
  - PYREXIA [None]
  - RASH PAPULAR [None]
  - SKIN LESION [None]
  - STEVENS-JOHNSON SYNDROME [None]
  - TOXIC SKIN ERUPTION [None]
  - VISION BLURRED [None]
